FAERS Safety Report 22529219 (Version 1)
Quarter: 2023Q2

REPORT INFORMATION
  Report Type: Spontaneous
  Country: IT (occurrence: IT)
  Receive Date: 20230607
  Receipt Date: 20230607
  Transmission Date: 20230722
  Serious: Yes (Other)
  Sender: FDA-Public Use
  Company Number: IT-BAXTER-2023BAX022680

PATIENT
  Sex: Female

DRUGS (14)
  1. PEMBROLIZUMAB [Suspect]
     Active Substance: PEMBROLIZUMAB
     Indication: Triple negative breast cancer
     Dosage: 200 MG, Q3W, 4TH CYCLE
     Route: 042
     Dates: start: 20221111
  2. PEMBROLIZUMAB [Suspect]
     Active Substance: PEMBROLIZUMAB
     Dosage: 200 MG, Q3W, 2ST CYCLE
     Route: 042
     Dates: start: 20220926
  3. PEMBROLIZUMAB [Suspect]
     Active Substance: PEMBROLIZUMAB
     Dosage: 200 MG, Q3W, 3RD CYCLE
     Route: 042
     Dates: start: 20221021
  4. PEMBROLIZUMAB [Suspect]
     Active Substance: PEMBROLIZUMAB
     Dosage: 5TH CYCLE
     Route: 065
     Dates: start: 20221209
  5. PEMBROLIZUMAB [Suspect]
     Active Substance: PEMBROLIZUMAB
     Dosage: 200 MG Q3W, 8TH CYCLE
     Route: 042
     Dates: start: 20230227
  6. PEMBROLIZUMAB [Suspect]
     Active Substance: PEMBROLIZUMAB
     Dosage: 7 CYCLE
     Route: 065
     Dates: start: 20230209
  7. PEMBROLIZUMAB [Suspect]
     Active Substance: PEMBROLIZUMAB
     Dosage: 200 MG, Q3W,  1ST CYCLE
     Route: 042
     Dates: start: 20220905
  8. PEMBROLIZUMAB [Suspect]
     Active Substance: PEMBROLIZUMAB
     Dosage: 200 MG, Q3W
     Route: 042
     Dates: start: 20230116
  9. PEMBROLIZUMAB [Suspect]
     Active Substance: PEMBROLIZUMAB
     Dosage: CYCLE 6
     Route: 065
     Dates: start: 20230113
  10. PEMBROLIZUMAB [Suspect]
     Active Substance: PEMBROLIZUMAB
     Dosage: Q3W
     Route: 065
     Dates: start: 20220906
  11. DOXORUBICIN [Suspect]
     Active Substance: DOXORUBICIN
     Indication: Triple negative breast cancer
     Dosage: 94.2 MG,  Q3W
     Route: 042
     Dates: start: 20221209, end: 20230102
  12. DOXORUBICIN [Suspect]
     Active Substance: DOXORUBICIN
     Dosage: 94.2 MG, Q3W
     Route: 042
     Dates: start: 20230116
  13. CYCLOPHOSPHAMIDE [Suspect]
     Active Substance: CYCLOPHOSPHAMIDE
     Indication: Triple negative breast cancer
     Dosage: 942 MG,  Q3W
     Route: 042
     Dates: start: 20230116
  14. CYCLOPHOSPHAMIDE [Suspect]
     Active Substance: CYCLOPHOSPHAMIDE
     Dosage: 942 MG, Q3W
     Route: 042
     Dates: start: 20221209, end: 20230102

REACTIONS (1)
  - Neutrophil count decreased [Recovered/Resolved]

NARRATIVE: CASE EVENT DATE: 20230102
